FAERS Safety Report 7269884-6 (Version None)
Quarter: 2011Q1

REPORT INFORMATION
  Report Type: 
  Country: None (occurrence: None)
  Receive Date: 20110202
  Receipt Date: 20110126
  Transmission Date: 20110831
  Serious: Yes (Hospitalization)
  Sender: FDA-Public Use
  Company Number: US-US-EMD SERONO, INC.-7038822

PATIENT
  Sex: Female

DRUGS (5)
  1. NEURONTIN [Concomitant]
     Indication: BACK PAIN
  2. REBIF [Suspect]
     Indication: MULTIPLE SCLEROSIS
     Route: 058
     Dates: start: 20100326, end: 20110101
  3. MORPHINE [Concomitant]
     Indication: BACK PAIN
  4. UNSPECIFIED BLOOD PRESSURE MEDICATION [Concomitant]
     Indication: HYPERTENSION
  5. ADVIL [Concomitant]
     Indication: BACK PAIN

REACTIONS (5)
  - HEADACHE [None]
  - GASTROINTESTINAL HAEMORRHAGE [None]
  - THERAPY CESSATION [None]
  - LOSS OF CONSCIOUSNESS [None]
  - DRUG INEFFECTIVE [None]
